FAERS Safety Report 11197920 (Version 2)
Quarter: 2015Q3

REPORT INFORMATION
  Report Type: Spontaneous
  Country: US (occurrence: US)
  Receive Date: 20150617
  Receipt Date: 20150917
  Transmission Date: 20151125
  Serious: No
  Sender: FDA-Public Use
  Company Number: US-GALDERMA-US15002407

PATIENT
  Age: 62 Year
  Sex: Female

DRUGS (2)
  1. ARBONNE CLEANSER [Concomitant]
     Indication: THERAPEUTIC SKIN CARE TOPICAL
     Route: 061
  2. MIRVASO [Suspect]
     Active Substance: BRIMONIDINE TARTRATE
     Indication: ROSACEA
     Dosage: 0.33%
     Route: 061
     Dates: start: 20150421, end: 20150426

REACTIONS (6)
  - Skin texture abnormal [Recovered/Resolved]
  - Flushing [Recovered/Resolved]
  - Condition aggravated [Recovered/Resolved]
  - Skin warm [Recovered/Resolved]
  - Headache [Recovered/Resolved]
  - Drug ineffective [Recovered/Resolved]

NARRATIVE: CASE EVENT DATE: 20150421
